FAERS Safety Report 9154781 (Version 4)
Quarter: 2013Q1

REPORT INFORMATION
  Report Type: Spontaneous
  Country: AT (occurrence: AT)
  Receive Date: 20130311
  Receipt Date: 20130329
  Transmission Date: 20140127
  Serious: Yes (Hospitalization)
  Sender: FDA-Public Use
  Company Number: AT-ROCHE-1200347

PATIENT
  Age: 6 Year
  Sex: Male

DRUGS (2)
  1. TAMIFLU [Suspect]
     Indication: PRODUCT USED FOR UNKNOWN INDICATION
     Route: 065
     Dates: start: 20130301
  2. CLAVAMOX [Concomitant]
     Route: 065
     Dates: start: 20130227

REACTIONS (1)
  - Convulsion [Recovered/Resolved]
